FAERS Safety Report 5233153-6 (Version None)
Quarter: 2007Q1

REPORT INFORMATION
  Report Type: 
  Country: None (occurrence: None)
  Receive Date: 20070207
  Receipt Date: 20070129
  Transmission Date: 20070707
  Serious: Yes (Other)
  Sender: FDA-Public Use
  Company Number: GB-PFIZER INC-2007007850

PATIENT
  Age: 85 Year
  Sex: Female
  Weight: 60 kg

DRUGS (3)
  1. AMLODIPINE [Suspect]
     Indication: HYPERTENSION
     Route: 048
     Dates: start: 20050201, end: 20061101
  2. ASPIRIN [Concomitant]
     Indication: PROPHYLAXIS
     Dosage: DAILY DOSE:75MG
  3. IRBESARTAN [Concomitant]
     Indication: HYPERTENSION
     Dosage: DAILY DOSE:150MG

REACTIONS (2)
  - LICHENOID KERATOSIS [None]
  - SKIN WRINKLING [None]
